FAERS Safety Report 10006496 (Version 2)
Quarter: 2014Q2

REPORT INFORMATION
  Report Type: Spontaneous
  Country: GB (occurrence: GB)
  Receive Date: 20140313
  Receipt Date: 20140505
  Transmission Date: 20141212
  Serious: Yes (Hospitalization, Other)
  Sender: FDA-Public Use
  Company Number: GB-TEVA-468037ISR

PATIENT
  Age: 60 Year
  Sex: Female
  Weight: 55.4 kg

DRUGS (9)
  1. CISPLATIN [Suspect]
     Indication: NEOADJUVANT THERAPY
     Dates: start: 20131203, end: 20131203
  2. CISPLATIN [Suspect]
     Indication: LUNG ADENOCARCINOMA
     Dates: start: 20140114, end: 20140114
  3. VITAMIN B12 SUBSTANCES [Suspect]
     Indication: NON-SMALL CELL LUNG CANCER
     Route: 030
     Dates: start: 20140114, end: 20140114
  4. ALIMTA [Suspect]
     Indication: NEOADJUVANT THERAPY
     Route: 041
     Dates: start: 20140114, end: 20140114
  5. APREPITANT [Concomitant]
     Indication: NON-SMALL CELL LUNG CANCER
     Route: 048
     Dates: start: 20131203
  6. CYCLIZINE [Concomitant]
     Indication: NON-SMALL CELL LUNG CANCER
     Route: 048
     Dates: start: 20131203
  7. DEXAMETHASONE [Concomitant]
     Indication: NON-SMALL CELL LUNG CANCER
     Dosage: 8 MILLIGRAM DAILY;
     Route: 048
     Dates: start: 20131203
  8. FOLINIC ACID [Concomitant]
     Indication: NON-SMALL CELL LUNG CANCER
     Dosage: DAILY
     Route: 048
     Dates: start: 20131203
  9. ONDANSETRON [Concomitant]
     Indication: NON-SMALL CELL LUNG CANCER
     Route: 048
     Dates: start: 20131203

REACTIONS (7)
  - Rash generalised [Recovered/Resolved]
  - Capillary leak syndrome [Recovered/Resolved]
  - Swelling face [Recovered/Resolved]
  - Vomiting [Recovered/Resolved]
  - Rash [Unknown]
  - Peripheral swelling [Recovered/Resolved]
  - Nausea [Recovered/Resolved]
